FAERS Safety Report 18040077 (Version 1)
Quarter: 2020Q3

REPORT INFORMATION
  Report Type: Spontaneous
  Country: AT (occurrence: AT)
  Receive Date: 20200717
  Receipt Date: 20200717
  Transmission Date: 20201103
  Serious: Yes (Disabling, Other)
  Sender: FDA-Public Use
  Company Number: AT-ALLERGAN-2026679US

PATIENT
  Sex: Female

DRUGS (27)
  1. MEMANTINE HCL ? BP [Suspect]
     Active Substance: MEMANTINE
     Dosage: 20 MG, 1 IN 1 D
     Dates: start: 2010, end: 2016
  2. RISPERIDONE. [Suspect]
     Active Substance: RISPERIDONE
     Dosage: 0.5 MG, 1 IN 1 D
     Dates: start: 2013, end: 2014
  3. RISPERIDONE. [Suspect]
     Active Substance: RISPERIDONE
     Dosage: 1 MG, 1 IN 1 D
     Dates: start: 2012, end: 2013
  4. RISPERIDONE. [Suspect]
     Active Substance: RISPERIDONE
     Dosage: 2 MG, 1 IN 1 D
     Dates: start: 2009, end: 2011
  5. MEMANTINE HCL ? BP [Suspect]
     Active Substance: MEMANTINE
     Indication: DEMENTIA ALZHEIMER^S TYPE
     Dosage: 5 MG, 1 IN 1 D
     Dates: start: 2018, end: 2019
  6. MEMANTINE HCL ? BP [Suspect]
     Active Substance: MEMANTINE
     Dosage: 10 MG, 1 IN 1 D
     Dates: start: 2017, end: 2018
  7. SERTRALINE [Suspect]
     Active Substance: SERTRALINE HYDROCHLORIDE
     Indication: DEPRESSION
     Dosage: 50 MG, 1 IN 1 D
     Dates: start: 2012
  8. MEMANTINE HCL ? BP [Suspect]
     Active Substance: MEMANTINE
     Dosage: 5 MG, 1 IN 1 D
     Dates: start: 201002, end: 2010
  9. SERTRALINE [Suspect]
     Active Substance: SERTRALINE HYDROCHLORIDE
     Dosage: 75 MG, 1 IN 1 D
     Dates: start: 2011, end: 2012
  10. RISPERIDONE. [Suspect]
     Active Substance: RISPERIDONE
     Dosage: 2 MG, 1 IN 1 D
     Dates: start: 2016, end: 2017
  11. RISPERIDONE. [Suspect]
     Active Substance: RISPERIDONE
     Dosage: 1 MG, 1 IN 1 D
     Dates: start: 2015, end: 2016
  12. DONEPEZIL. [Suspect]
     Active Substance: DONEPEZIL
     Indication: DEMENTIA ALZHEIMER^S TYPE
     Dosage: 10 MG, 1 IN 1 D
     Dates: start: 2008
  13. METFORMIN [Concomitant]
     Active Substance: METFORMIN HYDROCHLORIDE
     Indication: TYPE 2 DIABETES MELLITUS
     Dosage: 1000 MG, 1 IN 1 D
  14. RISPERIDONE. [Suspect]
     Active Substance: RISPERIDONE
     Dosage: 2 MG, 1 IN 1 D
     Dates: start: 2016, end: 2017
  15. RISPERIDONE. [Suspect]
     Active Substance: RISPERIDONE
     Dosage: 3 MG, 1 IN 1 D
     Dates: start: 200808, end: 2009
  16. DONEPEZIL. [Suspect]
     Active Substance: DONEPEZIL
     Dosage: 5 MG, 1 IN 1 D
     Dates: start: 200808
  17. ENALAPRIL [Concomitant]
     Active Substance: ENALAPRIL
     Indication: HYPERTENSION
     Dosage: 5 MG, 1 IN 1 D
  18. SERTRALINE [Suspect]
     Active Substance: SERTRALINE HYDROCHLORIDE
     Dosage: 100 MG, 1 IN 1 D
     Dates: start: 2010, end: 2011
  19. SERTRALINE [Suspect]
     Active Substance: SERTRALINE HYDROCHLORIDE
     Dosage: 75 MG, 1 IN 1 D
     Dates: start: 2009, end: 2010
  20. SERTRALINE [Suspect]
     Active Substance: SERTRALINE HYDROCHLORIDE
     Dosage: 50 MG, 1 IN 1 D
     Dates: start: 200808, end: 2009
  21. VITAMIN D3 [Concomitant]
     Active Substance: CHOLECALCIFEROL
     Indication: OSTEOPOROSIS PROPHYLAXIS
  22. MEMANTINE HCL ? BP [Suspect]
     Active Substance: MEMANTINE
     Dosage: 15 MG, 1 IN 1 D
     Dates: start: 2010, end: 2010
  23. MEMANTINE HCL ? BP [Suspect]
     Active Substance: MEMANTINE
     Dosage: 10 MG, 1 IN 1 D
     Dates: start: 2010, end: 2010
  24. DIAZEPAM. [Suspect]
     Active Substance: DIAZEPAM
     Indication: PRODUCT USED FOR UNKNOWN INDICATION
     Dosage: 2 MG, 1 IN 1 D
     Dates: start: 2017, end: 2018
  25. RISPERIDONE. [Suspect]
     Active Substance: RISPERIDONE
     Indication: NEUROPSYCHIATRIC SYMPTOMS
     Dosage: 0.5 MG, 1 IN 1 D
     Dates: start: 2018, end: 2019
  26. DIAZEPAM. [Suspect]
     Active Substance: DIAZEPAM
     Dosage: 1 MG, 1 IN 1 D
     Dates: start: 201601, end: 2017
  27. QUETIAPINE. [Suspect]
     Active Substance: QUETIAPINE
     Indication: NEUROPSYCHIATRIC SYMPTOMS
     Dosage: 25 MG, 1 IN 1 D
     Dates: start: 201601, end: 2018

REACTIONS (5)
  - Sedation [Recovering/Resolving]
  - Dementia [Not Recovered/Not Resolved]
  - Cognitive disorder [Unknown]
  - Epilepsy [Unknown]
  - Immobile [Not Recovered/Not Resolved]

NARRATIVE: CASE EVENT DATE: 201506
